FAERS Safety Report 6080998-9 (Version None)
Quarter: 2009Q1

REPORT INFORMATION
  Report Type: 
  Country: None (occurrence: None)
  Receive Date: 20090217
  Receipt Date: 20090212
  Transmission Date: 20090719
  Serious: Yes (Other)
  Sender: FDA-Public Use
  Company Number: US-B.I. PHARMACEUTICALS,INC./RIDGEFIELD-2008-BP-12013BP

PATIENT
  Sex: Female

DRUGS (7)
  1. CATAPRES-TTS-1 [Suspect]
     Indication: HYPERTENSION
     Dosage: .2MG
     Route: 061
     Dates: start: 20080601, end: 20080928
  2. CATAPRES-TTS-1 [Suspect]
     Dosage: .2MG
     Route: 061
     Dates: start: 20081001, end: 20081008
  3. CLONIDINE HCL [Suspect]
     Indication: HYPERTENSION
     Route: 048
     Dates: start: 20080401
  4. CARDIZEM LA [Concomitant]
     Indication: HYPERTENSION
  5. ALTACE [Concomitant]
     Indication: HYPERTENSION
  6. TOPROL-XL [Concomitant]
     Indication: HYPERTENSION
  7. HRT PATCH [Concomitant]
     Indication: MENOPAUSE

REACTIONS (10)
  - APPLICATION SITE BLEEDING [None]
  - APPLICATION SITE BURN [None]
  - APPLICATION SITE RASH [None]
  - APPLICATION SITE VESICLES [None]
  - BLOOD PRESSURE INADEQUATELY CONTROLLED [None]
  - BLOOD PRESSURE INCREASED [None]
  - DERMATITIS CONTACT [None]
  - DRUG INEFFECTIVE [None]
  - HYPERSENSITIVITY [None]
  - URTICARIA [None]
